FAERS Safety Report 25399464 (Version 1)
Quarter: 2025Q2

REPORT INFORMATION
  Report Type: Spontaneous
  Country: CN (occurrence: CN)
  Receive Date: 20250605
  Receipt Date: 20250605
  Transmission Date: 20250717
  Serious: Yes (Hospitalization, Other)
  Sender: BEIGENE
  Company Number: CN-BEIGENE-BGN-2025-008707

PATIENT
  Age: 63 Year

DRUGS (10)
  1. TISLELIZUMAB [Suspect]
     Active Substance: TISLELIZUMAB
     Indication: Nasal cavity cancer
  2. TISLELIZUMAB [Suspect]
     Active Substance: TISLELIZUMAB
     Indication: Laryngeal cancer
     Route: 041
  3. TISLELIZUMAB [Suspect]
     Active Substance: TISLELIZUMAB
     Route: 041
  4. TISLELIZUMAB [Suspect]
     Active Substance: TISLELIZUMAB
  5. CAPECITABINE [Concomitant]
     Active Substance: CAPECITABINE
     Indication: Nasal cavity cancer
     Dosage: 0.5 GRAM, BID
     Route: 048
  6. CAPECITABINE [Concomitant]
     Active Substance: CAPECITABINE
     Indication: Laryngeal cancer
     Dosage: 0.5 GRAM, BID
  7. PACLITAXEL [Concomitant]
     Active Substance: PACLITAXEL
     Indication: Nasal cavity cancer
     Route: 041
  8. PACLITAXEL [Concomitant]
     Active Substance: PACLITAXEL
     Indication: Laryngeal cancer
  9. CISPLATIN [Concomitant]
     Active Substance: CISPLATIN
     Indication: Nasal cavity cancer
     Route: 041
  10. CISPLATIN [Concomitant]
     Active Substance: CISPLATIN
     Indication: Laryngeal cancer

REACTIONS (4)
  - Myocardial necrosis marker increased [Recovering/Resolving]
  - Eyelid ptosis [Recovering/Resolving]
  - Hepatic function abnormal [Recovering/Resolving]
  - Thyroid disorder [Unknown]
